FAERS Safety Report 17239560 (Version 1)
Quarter: 2020Q1

REPORT INFORMATION
  Report Type: Spontaneous
  Country: US (occurrence: US)
  Receive Date: 20200106
  Receipt Date: 20200106
  Transmission Date: 20200409
  Serious: No
  Sender: FDA-Public Use
  Company Number: US-ROCHE-2229704

PATIENT
  Age: 74 Year
  Sex: Male
  Weight: 94.98 kg

DRUGS (3)
  1. BENADRYL [Concomitant]
     Active Substance: DIPHENHYDRAMINE HYDROCHLORIDE
  2. GAZYVA [Suspect]
     Active Substance: OBINUTUZUMAB
     Indication: CHRONIC LYMPHOCYTIC LEUKAEMIA
     Dosage: FREQUENCY: Q 28 DAYS
     Route: 042
     Dates: start: 20181112
  3. GAZYVA [Suspect]
     Active Substance: OBINUTUZUMAB
     Dosage: PATIENT ON DAY 15 OF CYCLE 1 ;ONGOING: YES
     Route: 042

REACTIONS (2)
  - Incorrect drug administration rate [Unknown]
  - Hypertension [Recovered/Resolved]

NARRATIVE: CASE EVENT DATE: 20181126
